FAERS Safety Report 16165480 (Version 2)
Quarter: 2019Q2

REPORT INFORMATION
  Report Type: Spontaneous
  Country: US (occurrence: US)
  Receive Date: 20190405
  Receipt Date: 20190619
  Transmission Date: 20190711
  Serious: Yes (Hospitalization, Other)
  Sender: FDA-Public Use
  Company Number: US-ASTRAZENECA-2019SE49105

PATIENT
  Age: 15479 Day
  Sex: Female

DRUGS (28)
  1. DELTASONE [Concomitant]
     Active Substance: PREDNISONE
  2. TRAMADOL. [Concomitant]
     Active Substance: TRAMADOL
  3. GLIMEPIRIDE. [Concomitant]
     Active Substance: GLIMEPIRIDE
  4. NITROFURANTOIN. [Concomitant]
     Active Substance: NITROFURANTOIN
  5. ACETAMINOPHEN. [Concomitant]
     Active Substance: ACETAMINOPHEN
  6. AMOXICILLIN. [Concomitant]
     Active Substance: AMOXICILLIN
  7. SENNA [Concomitant]
     Active Substance: SENNA LEAF\SENNOSIDES\SENNOSIDES A AND B
  8. ONDANSETRON [Concomitant]
     Active Substance: ONDANSETRON
  9. NOVOLOG [Concomitant]
     Active Substance: INSULIN ASPART
  10. KOMBIGLYZE XR [Suspect]
     Active Substance: METFORMIN HYDROCHLORIDE\SAXAGLIPTIN HYDROCHLORIDE
     Route: 048
  11. CEPHALEXIN. [Concomitant]
     Active Substance: CEPHALEXIN
  12. ATORVASTATIN [Concomitant]
     Active Substance: ATORVASTATIN
  13. NYSTATIN. [Concomitant]
     Active Substance: NYSTATIN
  14. LISINOPRIL. [Concomitant]
     Active Substance: LISINOPRIL
  15. METFORMIN [Concomitant]
     Active Substance: METFORMIN HYDROCHLORIDE
  16. CARVEDILOL. [Concomitant]
     Active Substance: CARVEDILOL
  17. IBUPROFEN. [Concomitant]
     Active Substance: IBUPROFEN
  18. ALBUTEROL. [Concomitant]
     Active Substance: ALBUTEROL
  19. ONGLYZA [Suspect]
     Active Substance: SAXAGLIPTIN HYDROCHLORIDE
     Indication: TYPE 2 DIABETES MELLITUS
     Dosage: 5.0MG UNKNOWN
     Route: 048
     Dates: start: 20170808, end: 20171224
  20. VITAMIN D2 [Concomitant]
     Active Substance: ERGOCALCIFEROL
  21. CLOTRIMAZOLE. [Concomitant]
     Active Substance: CLOTRIMAZOLE
  22. FUROSEMIDE. [Concomitant]
     Active Substance: FUROSEMIDE
  23. FERROUS SULFATE. [Concomitant]
     Active Substance: FERROUS SULFATE
  24. ENOXAPARIN [Concomitant]
     Active Substance: ENOXAPARIN
  25. HEPARIN [Concomitant]
     Active Substance: HEPARIN SODIUM
  26. FLUCONAZOLE. [Concomitant]
     Active Substance: FLUCONAZOLE
  27. LOVENOX [Concomitant]
     Active Substance: ENOXAPARIN SODIUM
  28. PANTOPRAZOLE SODIUM. [Concomitant]
     Active Substance: PANTOPRAZOLE SODIUM

REACTIONS (4)
  - Pneumonia [Unknown]
  - Dyspnoea [Unknown]
  - Cardiac failure congestive [Unknown]
  - Cardiac failure [Unknown]

NARRATIVE: CASE EVENT DATE: 20180226
